FAERS Safety Report 8521148-6 (Version None)
Quarter: 2012Q3

REPORT INFORMATION
  Report Type: 
  Country: None (occurrence: None)
  Receive Date: 20120712
  Receipt Date: 20120712
  Transmission Date: 20120928
  Serious: Yes (Life-Threatening)
  Sender: FDA-Public Use
  Company Number: None

PATIENT
  Age: 51 Year
  Sex: Male
  Weight: 103 kg

DRUGS (1)
  1. NOVOLOG [Suspect]
     Indication: TYPE 2 DIABETES MELLITUS
     Dosage: 5 TO 10 UNITS TIDAC SQ
     Route: 058
     Dates: start: 20120516, end: 20120518

REACTIONS (5)
  - PRURITUS [None]
  - URTICARIA [None]
  - UNRESPONSIVE TO STIMULI [None]
  - RASH [None]
  - DYSPNOEA [None]
